FAERS Safety Report 6217426-6 (Version None)
Quarter: 2009Q2

REPORT INFORMATION
  Report Type: 
  Country: None (occurrence: None)
  Receive Date: 20090608
  Receipt Date: 20080929
  Transmission Date: 20091009
  Serious: No
  Sender: FDA-Public Use
  Company Number: A0749824A

PATIENT
  Age: 27 Year
  Sex: Female

DRUGS (2)
  1. WELLBUTRIN XL [Suspect]
     Indication: DEPRESSION
     Dosage: 300TAB PER DAY
     Route: 048
     Dates: start: 20080927
  2. RANITIDINE [Concomitant]

REACTIONS (6)
  - DRY MOUTH [None]
  - HEART RATE INCREASED [None]
  - INSOMNIA [None]
  - NAUSEA [None]
  - PARAESTHESIA ORAL [None]
  - TREMOR [None]
